FAERS Safety Report 8817031 (Version 1)
Quarter: 2012Q4

REPORT INFORMATION
  Report Type: Spontaneous
  Country: US (occurrence: None)
  Receive Date: 20121003
  Receipt Date: 20121003
  Transmission Date: 20130627
  Serious: Yes (Disabling)
  Sender: FDA-Public Use
  Company Number: None

PATIENT
  Age: 29 Year
  Sex: Male
  Weight: 84.82 kg

DRUGS (3)
  1. AMPHETAMINE 120MG DAILY [Suspect]
  2. ADDERALL [Concomitant]
  3. ADDERALL XR [Concomitant]

REACTIONS (2)
  - Unevaluable event [None]
  - No adverse event [None]
